FAERS Safety Report 14854057 (Version 1)
Quarter: 2018Q2

REPORT INFORMATION
  Report Type: Spontaneous
  Country: GB (occurrence: GB)
  Receive Date: 20180507
  Receipt Date: 20180507
  Transmission Date: 20180711
  Serious: Yes (Other)
  Sender: FDA-Public Use
  Company Number: GB-PFIZER INC-2018178564

PATIENT

DRUGS (1)
  1. CARBOPLATIN. [Suspect]
     Active Substance: CARBOPLATIN
     Indication: CHEMOTHERAPY
     Dosage: UNK
     Route: 042
     Dates: start: 20170428

REACTIONS (5)
  - Nausea [Unknown]
  - Flushing [Unknown]
  - Abdominal pain [Unknown]
  - Unresponsive to stimuli [Unknown]
  - Hypotonia [Unknown]

NARRATIVE: CASE EVENT DATE: 20170428
